FAERS Safety Report 23595777 (Version 1)
Quarter: 2024Q1

REPORT INFORMATION
  Report Type: Spontaneous
  Country: US (occurrence: None)
  Receive Date: 20240304
  Receipt Date: 20240304
  Transmission Date: 20240410
  Serious: No
  Sender: FDA-Public Use
  Company Number: None

PATIENT
  Age: 86 Year
  Sex: Male
  Weight: 88 kg

DRUGS (3)
  1. GAMUNEX-C [Suspect]
     Active Substance: HUMAN IMMUNOGLOBULIN G
     Indication: Chronic inflammatory demyelinating polyradiculoneuropathy
     Dosage: OTHER FREQUENCY : EVERY 2 WEEKS;?
     Route: 041
     Dates: start: 20240228
  2. ACETAMINOPHEN [Concomitant]
  3. DIPHEHYDRAMINE [Concomitant]

REACTIONS (3)
  - Tremor [None]
  - Confusional state [None]
  - Infusion related reaction [None]

NARRATIVE: CASE EVENT DATE: 20240228
